FAERS Safety Report 17457040 (Version 2)
Quarter: 2020Q1

REPORT INFORMATION
  Report Type: Spontaneous
  Country: US (occurrence: US)
  Receive Date: 20200225
  Receipt Date: 20200330
  Transmission Date: 20200409
  Serious: No
  Sender: FDA-Public Use
  Company Number: US-PFIZER INC-2020082154

PATIENT
  Age: 62 Year
  Sex: Female
  Weight: 45.35 kg

DRUGS (2)
  1. MEDROXYPROGESTERONE ACETATE. [Suspect]
     Active Substance: MEDROXYPROGESTERONE ACETATE
     Dosage: 2.5 MG, UNK
     Dates: start: 20190101
  2. ESTRADIOL CIPIONATE [Suspect]
     Active Substance: ESTRADIOL CYPIONATE
     Dosage: 1 MG, UNK
     Dates: start: 20190101

REACTIONS (1)
  - Reading disorder [Recovered/Resolved]
